FAERS Safety Report 26178622 (Version 1)
Quarter: 2025Q4

REPORT INFORMATION
  Report Type: Spontaneous
  Country: GB (occurrence: GB)
  Receive Date: 20251219
  Receipt Date: 20251219
  Transmission Date: 20260118
  Serious: Yes (Other)
  Sender: AUROBINDO
  Company Number: GB-MHRA-MED-202512061350013320-MDCJP

PATIENT
  Age: 67 Year
  Sex: Female
  Weight: 84 kg

DRUGS (1)
  1. NITROFURANTOIN [Suspect]
     Active Substance: NITROFURANTOIN
     Indication: Urinary tract infection
     Dosage: 1 DOSAGE FORM, TWO TIMES A DAY (ONE IN MORNING AND ONE AT NIGHT)
     Route: 065
     Dates: start: 20251121

REACTIONS (2)
  - Medication error [Unknown]
  - Anger [Recovering/Resolving]

NARRATIVE: CASE EVENT DATE: 20251122
